FAERS Safety Report 5700407-6 (Version None)
Quarter: 2008Q2

REPORT INFORMATION
  Report Type: 
  Country: None (occurrence: None)
  Receive Date: 20080410
  Receipt Date: 20080328
  Transmission Date: 20081010
  Serious: Yes (Other)
  Sender: FDA-Public Use
  Company Number: BE-PFIZER INC-2008026479

PATIENT
  Sex: Female

DRUGS (7)
  1. CHAMPIX [Suspect]
     Indication: SMOKING CESSATION THERAPY
     Route: 048
  2. PREDNISOLONE [Concomitant]
     Route: 048
  3. ALL OTHER THERAPEUTIC PRODUCTS [Concomitant]
     Route: 048
  4. VITAMINS [Concomitant]
     Route: 048
  5. SIMVASTATIN [Concomitant]
     Route: 048
  6. LEFLUNOMIDE [Concomitant]
     Route: 048
  7. METHOTREXATE [Concomitant]
     Route: 048

REACTIONS (2)
  - POLYDIPSIA [None]
  - POLYURIA [None]
